FAERS Safety Report 14218637 (Version 1)
Quarter: 2017Q4

REPORT INFORMATION
  Report Type: Spontaneous
  Country: US (occurrence: US)
  Receive Date: 20171123
  Receipt Date: 20171123
  Transmission Date: 20180321
  Serious: Yes (Death)
  Sender: FDA-Public Use
  Company Number: US-BEH-2017085242

PATIENT
  Age: 86 Year
  Sex: Female
  Weight: 68.27 kg

DRUGS (27)
  1. VYTORIN [Concomitant]
     Active Substance: EZETIMIBE\SIMVASTATIN
     Route: 065
  2. ALLERPLEX [Concomitant]
     Route: 065
  3. HIZENTRA [Suspect]
     Active Substance: HUMAN IMMUNOGLOBULIN G
     Dosage: UNK
     Route: 058
  4. BACLOFEN. [Concomitant]
     Active Substance: BACLOFEN
     Route: 065
  5. LOSARTAN. [Concomitant]
     Active Substance: LOSARTAN
     Route: 065
  6. ATIVAN [Concomitant]
     Active Substance: LORAZEPAM
     Route: 065
  7. GAS-X [Concomitant]
     Active Substance: DIMETHICONE
     Route: 065
  8. ADVAIR HFA [Concomitant]
     Active Substance: FLUTICASONE PROPIONATE\SALMETEROL XINAFOATE
     Route: 065
  9. DOXEPIN [Concomitant]
     Active Substance: DOXEPIN
     Route: 065
  10. CIPRO [Concomitant]
     Active Substance: CIPROFLOXACIN HYDROCHLORIDE
     Route: 065
  11. ELIQUIS [Concomitant]
     Active Substance: APIXABAN
     Route: 065
  12. PRILOSEC [Concomitant]
     Active Substance: OMEPRAZOLE MAGNESIUM
     Route: 065
  13. PROBIOTIC                          /06395501/ [Concomitant]
     Active Substance: BIFIDOBACTERIUM ANIMALIS LACTIS
     Route: 065
  14. ALBUTEROL                          /00139501/ [Concomitant]
     Active Substance: ALBUTEROL
     Route: 065
  15. MULTIVITAMINS [Concomitant]
     Active Substance: VITAMINS
  16. GASTREX                            /00313401/ [Concomitant]
     Route: 065
  17. HIZENTRA [Suspect]
     Active Substance: HUMAN IMMUNOGLOBULIN G
     Indication: IMMUNODEFICIENCY COMMON VARIABLE
     Dosage: 13 G, QW
     Route: 058
     Dates: start: 20141203, end: 20171116
  18. MIRALAX [Concomitant]
     Active Substance: POLYETHYLENE GLYCOL 3350
     Route: 065
  19. BUSPIRONE [Concomitant]
     Active Substance: BUSPIRONE HYDROCHLORIDE
     Route: 065
  20. CALCIUM +D                         /00944201/ [Concomitant]
     Active Substance: CALCIUM CARBONATE\CHOLECALCIFEROL
     Route: 065
  21. MACRODANTIN [Concomitant]
     Active Substance: NITROFURANTOIN
     Route: 065
  22. FLOMAX [Concomitant]
     Active Substance: TAMSULOSIN HYDROCHLORIDE
     Route: 065
  23. AMLODIPINE [Concomitant]
     Active Substance: AMLODIPINE BESYLATE
     Route: 065
  24. LEXAPRO [Concomitant]
     Active Substance: ESCITALOPRAM OXALATE
     Route: 065
  25. HIZENTRA [Suspect]
     Active Substance: HUMAN IMMUNOGLOBULIN G
     Dosage: UNK
     Route: 058
  26. HIZENTRA [Suspect]
     Active Substance: HUMAN IMMUNOGLOBULIN G
     Dosage: UNK
     Route: 058
  27. COREG [Concomitant]
     Active Substance: CARVEDILOL
     Route: 065

REACTIONS (1)
  - Death [Fatal]

NARRATIVE: CASE EVENT DATE: 20171116
